FAERS Safety Report 10501181 (Version 2)
Quarter: 2014Q4

REPORT INFORMATION
  Report Type: Report from Study
  Country: US (occurrence: IT)
  Receive Date: 20141007
  Receipt Date: 20141105
  Transmission Date: 20150528
  Serious: Yes (Hospitalization)
  Sender: FDA-Public Use
  Company Number: IT-CELGENE-ITA-2014094444

PATIENT
  Sex: Male

DRUGS (2)
  1. REVLIMID [Suspect]
     Active Substance: LENALIDOMIDE
     Indication: MYELODYSPLASTIC SYNDROME
     Route: 048
     Dates: start: 20140819, end: 20141016
  2. AZACITIDINE INJECTABLE [Suspect]
     Active Substance: AZACITIDINE
     Indication: MYELODYSPLASTIC SYNDROME
     Dosage: 147.75 MILLIGRAM
     Route: 065
     Dates: start: 20140819, end: 20141016

REACTIONS (2)
  - Inguinal hernia [Not Recovered/Not Resolved]
  - Inguinal hernia, obstructive [Recovering/Resolving]

NARRATIVE: CASE EVENT DATE: 20140917
